FAERS Safety Report 23953908 (Version 1)
Quarter: 2024Q2

REPORT INFORMATION
  Report Type: Spontaneous
  Country: US (occurrence: US)
  Receive Date: 20240609
  Receipt Date: 20240609
  Transmission Date: 20240716
  Serious: Yes (Hospitalization)
  Sender: FDA-Public Use
  Company Number: US-JNJFOC-20240590183

PATIENT
  Age: 68 Year
  Sex: Male
  Weight: 104 kg

DRUGS (1)
  1. CARVYKTI [Suspect]
     Active Substance: CILTACABTAGENE AUTOLEUCEL
     Indication: Product used for unknown indication
     Route: 065
     Dates: start: 20230821

REACTIONS (2)
  - Cytokine release syndrome [Unknown]
  - Hypoxia [Unknown]

NARRATIVE: CASE EVENT DATE: 20230830
